FAERS Safety Report 18668636 (Version 2)
Quarter: 2022Q4

REPORT INFORMATION
  Report Type: Spontaneous
  Country: US (occurrence: US)
  Receive Date: 20201228
  Receipt Date: 20221013
  Transmission Date: 20230113
  Serious: Yes (Death, Other)
  Sender: FDA-Public Use
  Company Number: US-SAARTEMIS-SAC202012240117

PATIENT
  Age: 63 Year
  Sex: Male

DRUGS (2)
  1. ZANTAC [Suspect]
     Active Substance: RANITIDINE HYDROCHLORIDE
     Indication: Gastrooesophageal reflux disease
     Dosage: 75 MG, QD
     Route: 065
     Dates: start: 199801
  2. ZANTAC [Suspect]
     Active Substance: RANITIDINE HYDROCHLORIDE
     Indication: Dyspepsia
     Dosage: 300 MG, QD
     Route: 065
     Dates: end: 201901

REACTIONS (3)
  - Bladder cancer stage III [Fatal]
  - Renal cancer [Fatal]
  - Gastric disorder [Unknown]

NARRATIVE: CASE EVENT DATE: 20010101
